FAERS Safety Report 9270666 (Version 1)
Quarter: 2013Q2

REPORT INFORMATION
  Report Type: Spontaneous
  Country: US (occurrence: US)
  Receive Date: 20130506
  Receipt Date: 20130506
  Transmission Date: 20140414
  Serious: No
  Sender: FDA-Public Use
  Company Number: US-009507513-1305USA000605

PATIENT
  Age: 56 Year
  Sex: Female

DRUGS (2)
  1. NASONEX [Suspect]
     Indication: RHINITIS
     Dosage: 50 MICROGRAM, BID
     Route: 045
     Dates: start: 20130410, end: 20130430
  2. AMOXICILLIN [Concomitant]

REACTIONS (2)
  - Cough [Not Recovered/Not Resolved]
  - Drug ineffective [Not Recovered/Not Resolved]
